FAERS Safety Report 13141161 (Version 3)
Quarter: 2017Q1

REPORT INFORMATION
  Report Type: Spontaneous
  Country: US (occurrence: US)
  Receive Date: 20170123
  Receipt Date: 20170224
  Transmission Date: 20170428
  Serious: Yes (Hospitalization, Other)
  Sender: FDA-Public Use
  Company Number: US-ALEXION-A201700269

PATIENT
  Sex: Female

DRUGS (1)
  1. SOLIRIS [Suspect]
     Active Substance: ECULIZUMAB
     Indication: HAEMOLYTIC URAEMIC SYNDROME
     Dosage: 900 MG, QW
     Route: 042

REACTIONS (9)
  - Fall [Unknown]
  - Renal impairment [Unknown]
  - Haematemesis [Unknown]
  - Haemoglobin decreased [Unknown]
  - Vomiting [Unknown]
  - Chest pain [Not Recovered/Not Resolved]
  - Haemorrhage [Unknown]
  - Nausea [Unknown]
  - Abdominal pain [Not Recovered/Not Resolved]
